FAERS Safety Report 10085767 (Version 1)
Quarter: 2014Q2

REPORT INFORMATION
  Report Type: Spontaneous
  Country: TR (occurrence: None)
  Receive Date: 20140416
  Receipt Date: 20140416
  Transmission Date: 20141212
  Serious: Yes (Other)
  Sender: FDA-Public Use
  Company Number: 7282355

PATIENT
  Age: 4 Month
  Sex: Male

DRUGS (2)
  1. EUTHYROX [Suspect]
     Indication: HYPOTHYROIDISM
     Route: 048
     Dates: start: 20130915
  2. DOHYFRAL VITAMINE AD3 [Suspect]
     Route: 048
     Dates: start: 201401

REACTIONS (1)
  - Microcephaly [None]
